FAERS Safety Report 18894356 (Version 2)
Quarter: 2021Q1

REPORT INFORMATION
  Report Type: Spontaneous
  Country: GB (occurrence: GB)
  Receive Date: 20210215
  Receipt Date: 20210312
  Transmission Date: 20210420
  Serious: Yes (Other)
  Sender: FDA-Public Use
  Company Number: GB-PFIZER INC-2021115243

PATIENT
  Age: 30 Year
  Sex: Female
  Weight: 55 kg

DRUGS (1)
  1. SPIRONOLACTONE. [Suspect]
     Active Substance: SPIRONOLACTONE
     Indication: ACNE
     Dosage: 100MG
     Route: 048
     Dates: start: 20140807, end: 20140808

REACTIONS (12)
  - Muscular weakness [Unknown]
  - Feeling abnormal [Unknown]
  - Nausea [Recovered/Resolved]
  - Off label use [Unknown]
  - Dry mouth [Unknown]
  - Somnolence [Recovered/Resolved]
  - Asthenia [Recovered/Resolved]
  - Fatigue [Recovered/Resolved]
  - Dizziness [Recovered/Resolved]
  - Myalgia [Recovered/Resolved]
  - Malaise [Unknown]
  - Heart rate decreased [Recovered/Resolved]

NARRATIVE: CASE EVENT DATE: 20140807
